FAERS Safety Report 10491672 (Version 2)
Quarter: 2015Q4

REPORT INFORMATION
  Report Type: Spontaneous
  Country: US (occurrence: US)
  Receive Date: 20141002
  Receipt Date: 20151123
  Transmission Date: 20160304
  Serious: Yes (Hospitalization, Other)
  Sender: FDA-Public Use
  Company Number: US-GLAXOSMITHKLINE-A1057494A

PATIENT
  Age: 73 Year
  Sex: Female

DRUGS (9)
  1. PROAIR HFA [Concomitant]
     Active Substance: ALBUTEROL SULFATE
     Dosage: UNK, PRN
  2. IPRATROPIUM [Suspect]
     Active Substance: IPRATROPIUM
     Indication: DYSPNOEA
     Dosage: UNK UNK, PRN
  3. SIMVASTATIN. [Concomitant]
     Active Substance: SIMVASTATIN
  4. LOSARTAN. [Concomitant]
     Active Substance: LOSARTAN
  5. ANORO ELLIPTA [Suspect]
     Active Substance: UMECLIDINIUM BROMIDE\VILANTEROL TRIFENATATE
     Indication: CHRONIC OBSTRUCTIVE PULMONARY DISEASE
     Dosage: 1 PUFF(S), QD
     Route: 055
     Dates: end: 20151109
  6. COLESTIPOL [Concomitant]
     Active Substance: COLESTIPOL
  7. LORAZEPAM. [Concomitant]
     Active Substance: LORAZEPAM
  8. ALBUTEROL. [Concomitant]
     Active Substance: ALBUTEROL
  9. ADVAIR HFA [Suspect]
     Active Substance: FLUTICASONE PROPIONATE\SALMETEROL XINAFOATE
     Indication: ASTHMA
     Dosage: 250/50 MCG
     Route: 055

REACTIONS (6)
  - Pneumonia [Recovering/Resolving]
  - Nervousness [Recovered/Resolved]
  - Middle insomnia [Recovering/Resolving]
  - Dyspnoea [Recovered/Resolved]
  - Chest discomfort [Recovered/Resolved]
  - Potentiating drug interaction [Unknown]

NARRATIVE: CASE EVENT DATE: 201308
